FAERS Safety Report 24093275 (Version 1)
Quarter: 2024Q3

REPORT INFORMATION
  Report Type: Spontaneous
  Country: DE (occurrence: None)
  Receive Date: 20240715
  Receipt Date: 20240715
  Transmission Date: 20241017
  Serious: Yes (Other)
  Sender: ASTRAZENECA
  Company Number: 2024A160183

PATIENT
  Sex: Male

DRUGS (5)
  1. QUETIAPINE [Suspect]
     Active Substance: QUETIAPINE
     Dates: start: 202212, end: 202402
  2. OLANZAPINE [Suspect]
     Active Substance: OLANZAPINE
     Dates: start: 202212, end: 202402
  3. CLOZAPINE [Concomitant]
     Active Substance: CLOZAPINE
  4. ARIPIPRAZOLE [Concomitant]
     Active Substance: ARIPIPRAZOLE
  5. AMISULPRIDE [Concomitant]
     Active Substance: AMISULPRIDE

REACTIONS (28)
  - Erectile dysfunction [Unknown]
  - Hallucination [Unknown]
  - Weight increased [Unknown]
  - Somnolence [Unknown]
  - Dizziness [Unknown]
  - Akathisia [Unknown]
  - Constipation [Unknown]
  - Dry mouth [Unknown]
  - Arthralgia [Unknown]
  - Pyrexia [Unknown]
  - Hot flush [Unknown]
  - Hyperhidrosis [Unknown]
  - Eye movement disorder [Unknown]
  - Memory impairment [Unknown]
  - Speech disorder [Unknown]
  - Epistaxis [Unknown]
  - Alopecia [Unknown]
  - Bladder dysfunction [Unknown]
  - Micturition disorder [Unknown]
  - Restless legs syndrome [Unknown]
  - Pain [Unknown]
  - Pruritus [Unknown]
  - Insomnia [Unknown]
  - Muscle rigidity [Unknown]
  - Cardiac disorder [Not Recovered/Not Resolved]
  - Neurosis [Not Recovered/Not Resolved]
  - Therapy cessation [Unknown]
  - Drug withdrawal syndrome [Recovered/Resolved]
